FAERS Safety Report 8847082 (Version 1)
Quarter: 2012Q4

REPORT INFORMATION
  Report Type: Spontaneous
  Country: FR (occurrence: None)
  Receive Date: 20121017
  Receipt Date: 20121017
  Transmission Date: 20130627
  Serious: Yes (Hospitalization)
  Sender: FDA-Public Use
  Company Number: None

PATIENT
  Age: 83 Year
  Sex: Female

DRUGS (11)
  1. MICONAZOLE [Suspect]
     Indication: OROPHARYNGEAL CANDIDIASIS
     Route: 002
     Dates: start: 20120726
  2. TAVANIC [Suspect]
     Indication: INFECTION
     Dates: start: 20120724, end: 20120727
  3. IXPRIM (PARACETAMOL, TRAMADOL HYDROCHLORIDE) [Concomitant]
  4. CUBICIN (DAPTOMYCIN) [Concomitant]
  5. PREVISCAN [Concomitant]
  6. ZESTRIL (LISINOPRIL) [Concomitant]
  7. VERAPAMIL (VERAPAMIL) [Concomitant]
  8. LIPANOR (CIPROFIBRATE) [Concomitant]
  9. FOSAVANCE (COLECALCIFEROL, ALENDRONATE SODIUM) [Concomitant]
  10. LEVOTHYROX (LEVOTHYROXINE SODIUM) INFUSION [Concomitant]
  11. DAFALGAN (PARACETAMOL) [Concomitant]

REACTIONS (1)
  - Hepatocellular injury [None]
